FAERS Safety Report 7043467-5 (Version None)
Quarter: 2010Q4

REPORT INFORMATION
  Report Type: 
  Country: None (occurrence: None)
  Receive Date: 20101013
  Receipt Date: 20100706
  Transmission Date: 20110411
  Serious: No
  Sender: FDA-Public Use
  Company Number: US-BRISTOL-MYERS SQUIBB COMPANY-15183817

PATIENT
  Age: 76 Year
  Sex: Female

DRUGS (5)
  1. MEGACE [Suspect]
     Route: 048
     Dates: start: 20100614, end: 20100701
  2. OSCAL [Concomitant]
  3. KLOR-CON [Concomitant]
  4. ATIVAN [Concomitant]
     Dosage: 1 DOSAGE FORM = 0.25MG IN THE MORNING AND 1MG IN THE NIGHT.
  5. MAGNESIUM OXIDE [Concomitant]

REACTIONS (1)
  - VAGINAL HAEMORRHAGE [None]
